FAERS Safety Report 4423038-7 (Version None)
Quarter: 2004Q3

REPORT INFORMATION
  Report Type: 
  Country: None (occurrence: None)
  Receive Date: 20040811
  Receipt Date: 20040729
  Transmission Date: 20050211
  Serious: Yes (Other)
  Sender: FDA-Public Use
  Company Number: CH-JNJFOC-20040708048

PATIENT
  Sex: Male
  Weight: 75 kg

DRUGS (3)
  1. RISPERDAL [Suspect]
     Route: 049
  2. EFFEXOR [Concomitant]
     Route: 049
  3. TEMESTA [Concomitant]
     Route: 049

REACTIONS (3)
  - AORTIC ATHEROSCLEROSIS [None]
  - FACIAL PALSY [None]
  - NUCLEAR MAGNETIC RESONANCE IMAGING ABNORMAL [None]
